FAERS Safety Report 8236448-7 (Version None)
Quarter: 2012Q1

REPORT INFORMATION
  Report Type: 
  Country: None (occurrence: None)
  Receive Date: 20120326
  Receipt Date: 20120326
  Transmission Date: 20120608
  Serious: Yes (Hospitalization)
  Sender: FDA-Public Use
  Company Number: None

PATIENT
  Age: 77 Year
  Sex: Male
  Weight: 68.7 kg

DRUGS (2)
  1. GLIPIZIDE [Suspect]
     Dosage: 10 MG PO
     Route: 048
     Dates: start: 20110218, end: 20120323
  2. METFORMIN HCL [Suspect]
     Dosage: 1000 MG BID PO
     Route: 048
     Dates: start: 20070129

REACTIONS (11)
  - HYPOGLYCAEMIA [None]
  - DYSARTHRIA [None]
  - ASTHENIA [None]
  - ATRIAL FIBRILLATION [None]
  - DIZZINESS [None]
  - LOSS OF CONSCIOUSNESS [None]
  - FALL [None]
  - FEELING JITTERY [None]
  - PRESYNCOPE [None]
  - SYNCOPE [None]
  - OEDEMA PERIPHERAL [None]
